FAERS Safety Report 17479415 (Version 1)
Quarter: 2020Q1

REPORT INFORMATION
  Report Type: Report from Study
  Country: AU (occurrence: AU)
  Receive Date: 20200229
  Receipt Date: 20200229
  Transmission Date: 20200409
  Serious: No
  Sender: FDA-Public Use
  Company Number: AU-ROCHE-2557405

PATIENT
  Sex: Female

DRUGS (1)
  1. OCREVUS [Suspect]
     Active Substance: OCRELIZUMAB
     Indication: PRODUCT USED FOR UNKNOWN INDICATION
     Route: 042

REACTIONS (1)
  - Herpes zoster [Recovered/Resolved]
